FAERS Safety Report 10017444 (Version 1)
Quarter: 2014Q1

REPORT INFORMATION
  Report Type: Spontaneous
  Country: US (occurrence: None)
  Receive Date: 20140313
  Receipt Date: 20140313
  Transmission Date: 20141002
  Serious: Yes (Other)
  Sender: FDA-Public Use
  Company Number: None

PATIENT
  Age: 61 Year
  Sex: Female

DRUGS (7)
  1. ROBITUSSIN DM COUGH + CHEST [Suspect]
     Indication: COUGH
     Dosage: 10 ML, 4 TO 6 HRS, BY MOUTH
     Dates: start: 20140304, end: 20140304
  2. ROBITUSSIN DM COUGH + CHEST [Suspect]
     Indication: NASOPHARYNGITIS
     Dosage: 10 ML, 4 TO 6 HRS, BY MOUTH
     Dates: start: 20140304, end: 20140304
  3. WELLBUTRIN [Concomitant]
  4. COMBI-PATCH [Concomitant]
  5. CALCIUM [Concomitant]
  6. B12 [Concomitant]
  7. D3 [Concomitant]

REACTIONS (5)
  - Dizziness [None]
  - Nausea [None]
  - Headache [None]
  - Aphasia [None]
  - Abasia [None]
